FAERS Safety Report 12964545 (Version 1)
Quarter: 2016Q4

REPORT INFORMATION
  Report Type: Spontaneous
  Country: BR (occurrence: BR)
  Receive Date: 20161122
  Receipt Date: 20161122
  Transmission Date: 20170207
  Serious: Yes (Other)
  Sender: FDA-Public Use
  Company Number: BR-BAYER-2016-221097

PATIENT
  Sex: Female

DRUGS (2)
  1. MIRENA [Suspect]
     Active Substance: LEVONORGESTREL
     Indication: CONTRACEPTION
     Dosage: 20 ?G, CONT
     Route: 015
  2. MIRENA [Suspect]
     Active Substance: LEVONORGESTREL
     Indication: ABDOMINAL PAIN
     Dosage: 20 ?G, CONT
     Route: 015
     Dates: start: 2011

REACTIONS (5)
  - Amenorrhoea [Not Recovered/Not Resolved]
  - Procedural pain [None]
  - Urethral cyst [None]
  - Post procedural discomfort [None]
  - Therapeutic response unexpected [Not Recovered/Not Resolved]
